FAERS Safety Report 9742146 (Version 2)
Quarter: 2014Q4

REPORT INFORMATION
  Report Type: Spontaneous
  Country: US (occurrence: US)
  Receive Date: 20131210
  Receipt Date: 20141006
  Transmission Date: 20150529
  Serious: Yes (Hospitalization)
  Sender: FDA-Public Use
  Company Number: US-PFIZER INC-2013348406

PATIENT
  Age: 69 Year
  Sex: Male

DRUGS (2)
  1. INLYTA [Suspect]
     Active Substance: AXITINIB
     Dosage: UNK
     Dates: start: 2013
  2. INLYTA [Suspect]
     Active Substance: AXITINIB
     Dosage: 10 MG, 2X/DAY (5 MG - 2 TABLETS BID)
     Dates: start: 20121214, end: 2013

REACTIONS (2)
  - Abdominal pain upper [Unknown]
  - Cerebrovascular accident [Unknown]
